FAERS Safety Report 6406284-2 (Version None)
Quarter: 2009Q4

REPORT INFORMATION
  Report Type: 
  Country: None (occurrence: None)
  Receive Date: 20091019
  Receipt Date: 20091007
  Transmission Date: 20100525
  Serious: Yes (Hospitalization)
  Sender: FDA-Public Use
  Company Number: PHHY2009FR43446

PATIENT
  Age: 79 Year
  Sex: Male

DRUGS (1)
  1. RASILEZ [Suspect]
     Dosage: UNK
     Route: 048

REACTIONS (5)
  - ABDOMINAL DISTENSION [None]
  - ABDOMINAL PAIN [None]
  - DIARRHOEA [None]
  - INTESTINAL OBSTRUCTION [None]
  - VOMITING [None]
